FAERS Safety Report 15493550 (Version 1)
Quarter: 2018Q4

REPORT INFORMATION
  Report Type: Report from Study
  Country: MX (occurrence: MX)
  Receive Date: 20181012
  Receipt Date: 20181012
  Transmission Date: 20190205
  Serious: Yes (Death)
  Sender: FDA-Public Use
  Company Number: MX-UCBSA-2018044654

PATIENT
  Sex: Male

DRUGS (6)
  1. ROTIGOTINE [Suspect]
     Active Substance: ROTIGOTINE
     Dosage: 6 MG, ONCE DAILY (QD)
     Dates: start: 201807, end: 201808
  2. MADOPAR [Concomitant]
     Active Substance: BENSERAZIDE HYDROCHLORIDE\LEVODOPA
     Dosage: 1/2 TABLETS AT 7:00 AM, 1/2 TABLET AT 11:00 AM, 1/2 TABLET AT 03:00 PM AND 1/2 TABLET AT 7:00 PM
  3. KINEX [Concomitant]
     Active Substance: EPALRESTAT
     Dosage: 1 TABLET AT 7:00 AM AND 1 TABLET AT 3:00 PM
  4. SIFROL [Concomitant]
     Active Substance: PRAMIPEXOLE
     Dosage: 0.5 MG WITH A DOSE OF 1 TABLET AT 7:00 PM, 1 TABLET AT 1:00 PM, AND 7:00 PM
  5. ROTIGOTINE [Suspect]
     Active Substance: ROTIGOTINE
     Dosage: 8 MG, ONCE DAILY (QD)
     Dates: start: 201808
  6. ROTIGOTINE [Suspect]
     Active Substance: ROTIGOTINE
     Indication: PRODUCT USED FOR UNKNOWN INDICATION
     Dosage: 4 MG, ONCE DAILY (QD)
     Dates: start: 20160707, end: 201807

REACTIONS (1)
  - Death [Fatal]

NARRATIVE: CASE EVENT DATE: 2018
